FAERS Safety Report 9121970 (Version 1)
Quarter: 2013Q1

REPORT INFORMATION
  Report Type: Spontaneous
  Country: US (occurrence: US)
  Receive Date: 20130114
  Receipt Date: 20130114
  Transmission Date: 20140127
  Serious: No
  Sender: FDA-Public Use
  Company Number: US-PFIZER INC-2013014608

PATIENT
  Age: 67 Year
  Sex: Female
  Weight: 102 kg

DRUGS (5)
  1. EFFEXOR [Suspect]
     Indication: PAIN
     Dosage: ^30 MG^ DAILY
  2. EFFEXOR [Suspect]
     Indication: DEPRESSION
  3. CYMBALTA [Suspect]
     Indication: PAIN
     Dosage: 30 MG, DAILY
  4. CYMBALTA [Suspect]
     Indication: DEPRESSION
  5. MOBIC [Concomitant]
     Indication: ARTHRITIS
     Dosage: UNK, DAILY

REACTIONS (2)
  - Off label use [Unknown]
  - Libido decreased [Recovered/Resolved]
